FAERS Safety Report 10076137 (Version 3)
Quarter: 2014Q2

REPORT INFORMATION
  Report Type: Report from Study
  Country: US (occurrence: US)
  Receive Date: 20140414
  Receipt Date: 20140513
  Transmission Date: 20141212
  Serious: Yes (Hospitalization)
  Sender: FDA-Public Use
  Company Number: US-ACTELION-A-US2014-97011

PATIENT
  Age: 64 Year
  Sex: Female

DRUGS (4)
  1. TRACLEER [Suspect]
     Indication: PULMONARY ARTERIAL HYPERTENSION
     Dosage: UNK
     Route: 048
  2. SILDENAFIL [Concomitant]
  3. COUMADIN [Concomitant]
  4. TYVASO [Concomitant]

REACTIONS (5)
  - Cardiac pacemaker insertion [Unknown]
  - Cardio-respiratory arrest [Unknown]
  - Cardiac failure congestive [Unknown]
  - Fluid retention [Unknown]
  - Malaise [Unknown]
